FAERS Safety Report 23794660 (Version 1)
Quarter: 2024Q2

REPORT INFORMATION
  Report Type: Spontaneous
  Country: CZ (occurrence: CZ)
  Receive Date: 20240429
  Receipt Date: 20240429
  Transmission Date: 20240716
  Serious: Yes (Hospitalization, Other)
  Sender: FDA-Public Use
  Company Number: CZ-009507513-2404CZE005464

PATIENT
  Sex: Female

DRUGS (6)
  1. PACLITAXEL [Suspect]
     Active Substance: PACLITAXEL
     Indication: Breast cancer
     Dosage: 80 MILLIGRAM/SQ. METER, QW (EVERY WEEK)
     Route: 065
     Dates: start: 202304
  2. INFLIXIMAB [Suspect]
     Active Substance: INFLIXIMAB
     Indication: Enterocolitis
     Dosage: 300 MILLIGRAM, 0-2-6 WEEK
     Route: 042
     Dates: start: 2023
  3. CARBOPLATIN [Suspect]
     Active Substance: CARBOPLATIN
     Indication: Breast cancer
     Dosage: NACHT CARBOPLATINA AUC 1.5
     Route: 065
     Dates: start: 202304
  4. EPIRUBICIN [Suspect]
     Active Substance: EPIRUBICIN
     Indication: Triple negative breast cancer
     Dosage: UNK
     Route: 065
     Dates: start: 2023, end: 20230831
  5. CYCLOPHOSPHAMIDE [Suspect]
     Active Substance: CYCLOPHOSPHAMIDE
     Indication: Triple negative breast cancer
     Dosage: UNK
     Route: 065
     Dates: start: 2023, end: 20230831
  6. KEYTRUDA [Suspect]
     Active Substance: PEMBROLIZUMAB
     Indication: Breast cancer
     Dosage: 200 MILLIGRAM, Q3W, TOTAL 5 CYCLES
     Route: 042
     Dates: start: 20230419, end: 20230712

REACTIONS (13)
  - Immune-mediated enterocolitis [Unknown]
  - Colitis [Unknown]
  - Clostridium colitis [Unknown]
  - Neutropenia [Unknown]
  - Abnormal faeces [Unknown]
  - Toxicity to various agents [Unknown]
  - Weight decreased [Unknown]
  - Malnutrition [Unknown]
  - Upper respiratory tract infection [Unknown]
  - Fatigue [Unknown]
  - Hypotension [Unknown]
  - Nausea [Unknown]
  - Off label use [Unknown]
